FAERS Safety Report 7607742-5 (Version None)
Quarter: 2011Q3

REPORT INFORMATION
  Report Type: 
  Country: None (occurrence: None)
  Receive Date: 20110713
  Receipt Date: 20110531
  Transmission Date: 20111222
  Serious: Yes (Other)
  Sender: FDA-Public Use
  Company Number: PHHY2011ES47073

PATIENT
  Age: 67 Year
  Sex: Male

DRUGS (2)
  1. ASTUDAL [Concomitant]
     Dosage: 2 DF, EVERY DAY
     Route: 048
  2. RASILEZ [Suspect]
     Indication: HYPERTENSION
     Dosage: 300 MG, DAILY
     Route: 048

REACTIONS (5)
  - URINARY TRACT INFECTION [None]
  - OEDEMA PERIPHERAL [None]
  - PROSTATIC OBSTRUCTION [None]
  - BLOOD PRESSURE INCREASED [None]
  - URINE FLOW DECREASED [None]
